FAERS Safety Report 19318982 (Version 1)
Quarter: 2021Q2

REPORT INFORMATION
  Report Type: Spontaneous
  Country: US (occurrence: US)
  Receive Date: 20210528
  Receipt Date: 20210528
  Transmission Date: 20210717
  Serious: No
  Sender: FDA-Public Use
  Company Number: US-ALVOGEN-2021-ALVOGEN-117031

PATIENT
  Sex: Female

DRUGS (1)
  1. FLUOCINONIDE. [Suspect]
     Active Substance: FLUOCINONIDE
     Indication: LICHEN PLANUS

REACTIONS (2)
  - Incorrect route of product administration [Unknown]
  - Product leakage [Unknown]
